APPROVED DRUG PRODUCT: ACAMPROSATE CALCIUM
Active Ingredient: ACAMPROSATE CALCIUM
Strength: 333MG
Dosage Form/Route: TABLET, DELAYED RELEASE;ORAL
Application: A205995 | Product #001 | TE Code: AB
Applicant: ZYDUS PHARMACEUTICALS USA INC
Approved: May 26, 2017 | RLD: No | RS: No | Type: RX